FAERS Safety Report 9888737 (Version 2)
Quarter: 2014Q1

REPORT INFORMATION
  Report Type: Report from Study
  Country: FR (occurrence: FR)
  Receive Date: 20140211
  Receipt Date: 20140219
  Transmission Date: 20141002
  Serious: Yes (Hospitalization)
  Sender: FDA-Public Use
  Company Number: FR-BRISTOL-MYERS SQUIBB COMPANY-20185419

PATIENT
  Age: 66 Year
  Sex: Female

DRUGS (4)
  1. CETUXIMAB [Suspect]
     Indication: COLON CANCER
     Dosage: MOST RECENT DOSER: 06DEC12
     Dates: start: 20121011
  2. FLUOROURACIL [Suspect]
     Indication: COLON CANCER
     Dosage: 11OCT-06DEC12;IV BOLUS:4415MG,11OCT-06DEC12
     Route: 040
     Dates: start: 20121011
  3. FOLINIC ACID [Suspect]
     Indication: COLON CANCER
     Dosage: 11OCT-06DEC12
     Dates: start: 20121011
  4. OXALIPLATIN [Suspect]
     Indication: COLON CANCER
     Dosage: MOST RECENT DOSER: 06DEC12
     Dates: start: 20121011

REACTIONS (3)
  - Aphthous stomatitis [Not Recovered/Not Resolved]
  - Aphagia [Not Recovered/Not Resolved]
  - Dysphonia [Not Recovered/Not Resolved]
